FAERS Safety Report 8396025-4 (Version None)
Quarter: 2012Q2

REPORT INFORMATION
  Report Type: 
  Country: None (occurrence: None)
  Receive Date: 20120530
  Receipt Date: 20120523
  Transmission Date: 20120825
  Serious: Yes (Other)
  Sender: FDA-Public Use
  Company Number: VE-ROCHE-1072999

PATIENT
  Sex: Male

DRUGS (1)
  1. XOLAIR [Suspect]
     Indication: DYSPNOEA
     Route: 058
     Dates: start: 20120301

REACTIONS (3)
  - RHINITIS [None]
  - HYPERTENSIVE CRISIS [None]
  - NASAL OBSTRUCTION [None]
